FAERS Safety Report 21958760 (Version 5)
Quarter: 2023Q2

REPORT INFORMATION
  Report Type: Spontaneous
  Country: US (occurrence: US)
  Receive Date: 20230206
  Receipt Date: 20230501
  Transmission Date: 20230721
  Serious: No
  Sender: FDA-Public Use
  Company Number: US-PFIZER INC-PV202300021066

PATIENT
  Age: 65 Year
  Sex: Female

DRUGS (1)
  1. IBRANCE [Suspect]
     Active Substance: PALBOCICLIB
     Dosage: 100 MG

REACTIONS (6)
  - Hot flush [Unknown]
  - Lip ulceration [Unknown]
  - Constipation [Unknown]
  - Faeces hard [Unknown]
  - Stomatitis [Recovering/Resolving]
  - Lip dry [Not Recovered/Not Resolved]
